FAERS Safety Report 4941904-0 (Version None)
Quarter: 2006Q1

REPORT INFORMATION
  Report Type: 
  Country: None (occurrence: None)
  Receive Date: 20060307
  Receipt Date: 20060220
  Transmission Date: 20060701
  Serious: Yes (Death)
  Sender: FDA-Public Use
  Company Number: 034

PATIENT
  Sex: Female

DRUGS (1)
  1. FAZACLO ODT [Suspect]
     Dosage: 100MG PO DAILY
     Route: 048
     Dates: start: 20050921, end: 20060107

REACTIONS (1)
  - FAILURE TO THRIVE [None]
